FAERS Safety Report 11425146 (Version 1)
Quarter: 2015Q3

REPORT INFORMATION
  Report Type: Spontaneous
  Country: US (occurrence: US)
  Receive Date: 20150821
  Receipt Date: 20150821
  Transmission Date: 20151125
  Serious: No
  Sender: FDA-Public Use
  Company Number: US-ELI_LILLY_AND_COMPANY-US201302006774

PATIENT
  Age: 64 Year
  Sex: Female

DRUGS (2)
  1. HUMULIN N [Suspect]
     Active Substance: INSULIN HUMAN
     Indication: TYPE 2 DIABETES MELLITUS
     Dosage: UNK, UNKNOWN
     Dates: start: 20121223
  2. HUMULIN N [Suspect]
     Active Substance: INSULIN HUMAN
     Dosage: UNK, UNKNOWN

REACTIONS (8)
  - Ear swelling [Unknown]
  - Nasal congestion [Unknown]
  - Contusion [Unknown]
  - Memory impairment [Unknown]
  - Eye infection [Unknown]
  - Underdose [Unknown]
  - Intentional product misuse [Unknown]
  - Blood glucose increased [Recovering/Resolving]
